FAERS Safety Report 12701773 (Version 1)
Quarter: 2016Q3

REPORT INFORMATION
  Report Type: Spontaneous
  Country: US (occurrence: US)
  Receive Date: 20160831
  Receipt Date: 20160831
  Transmission Date: 20161109
  Serious: No
  Sender: FDA-Public Use
  Company Number: US-JAZZ-2016-US-007412

PATIENT
  Sex: Female

DRUGS (40)
  1. METFORMIN [Concomitant]
     Active Substance: METFORMIN HYDROCHLORIDE
  2. NUVIGIL [Concomitant]
     Active Substance: ARMODAFINIL
  3. NEURONTIN [Concomitant]
     Active Substance: GABAPENTIN
  4. FLONASE ALLERGY RLF [Concomitant]
  5. SYMBICORT [Concomitant]
     Active Substance: BUDESONIDE\FORMOTEROL FUMARATE DIHYDRATE
  6. PROAIR HFA [Concomitant]
     Active Substance: ALBUTEROL SULFATE
  7. ALBUTEROL SULFATE. [Concomitant]
     Active Substance: ALBUTEROL SULFATE
  8. BACLOFEN. [Concomitant]
     Active Substance: BACLOFEN
  9. VITAMIN D3 [Concomitant]
     Active Substance: CHOLECALCIFEROL
  10. PROVENTIL HFA [Concomitant]
     Active Substance: ALBUTEROL SULFATE
  11. SINGULAIR [Concomitant]
     Active Substance: MONTELUKAST SODIUM
  12. SPIRIVA [Concomitant]
     Active Substance: TIOTROPIUM BROMIDE MONOHYDRATE
  13. BUSPIRONE HCL [Concomitant]
     Active Substance: BUSPIRONE HYDROCHLORIDE
  14. CYANOCOBALAMIN. [Concomitant]
     Active Substance: CYANOCOBALAMIN
  15. RISPERDAL [Concomitant]
     Active Substance: RISPERIDONE
  16. XYREM [Suspect]
     Active Substance: SODIUM OXYBATE
     Indication: NARCOLEPSY
     Dosage: 3 G, BID
     Route: 048
     Dates: start: 201507, end: 2015
  17. ADDERALL [Concomitant]
     Active Substance: AMPHETAMINE ASPARTATE\AMPHETAMINE SULFATE\DEXTROAMPHETAMINE SACCHARATE\DEXTROAMPHETAMINE SULFATE
  18. SEROQUEL XR [Concomitant]
     Active Substance: QUETIAPINE FUMARATE
  19. ACETAMINOPHEN ES [Concomitant]
  20. NAPROXEN. [Concomitant]
     Active Substance: NAPROXEN
  21. XYREM [Suspect]
     Active Substance: SODIUM OXYBATE
     Indication: CATAPLEXY
     Dosage: 3.75 G, BID
     Route: 048
     Dates: start: 201510
  22. METFORMIN HCL [Concomitant]
     Active Substance: METFORMIN HYDROCHLORIDE
  23. TRAMADOL HCL [Concomitant]
     Active Substance: TRAMADOL HYDROCHLORIDE
  24. ZOLOFT [Concomitant]
     Active Substance: SERTRALINE HYDROCHLORIDE
  25. ADVAIR HFA [Concomitant]
     Active Substance: FLUTICASONE PROPIONATE\SALMETEROL XINAFOATE
  26. HYDROCHLOROTHIAZIDE. [Concomitant]
     Active Substance: HYDROCHLOROTHIAZIDE
  27. LYRICA [Concomitant]
     Active Substance: PREGABALIN
  28. VITAMIN B1 [Concomitant]
     Active Substance: THIAMINE HYDROCHLORIDE
  29. DICLOFENAC SODIUM DR [Concomitant]
     Active Substance: DICLOFENAC SODIUM
  30. GABAPENTIN. [Concomitant]
     Active Substance: GABAPENTIN
  31. IRON [Concomitant]
     Active Substance: IRON
  32. NEXIUM [Concomitant]
     Active Substance: ESOMEPRAZOLE MAGNESIUM
  33. ZANTAC [Concomitant]
     Active Substance: RANITIDINE HYDROCHLORIDE
  34. DOCQLACE [Concomitant]
     Active Substance: DOCUSATE SODIUM
  35. IPRATROPIUM/ALBUTEROL [Concomitant]
     Active Substance: ALBUTEROL\IPRATROPIUM
  36. RHINOCORT AQUA [Concomitant]
     Active Substance: BUDESONIDE
  37. B-COMPLEX PLUS B-12 [Concomitant]
  38. PROZAC [Concomitant]
     Active Substance: FLUOXETINE HYDROCHLORIDE
  39. CYPROHEPTADINE. [Concomitant]
     Active Substance: CYPROHEPTADINE
  40. MECLIZINE [Concomitant]
     Active Substance: MECLIZINE HYDROCHLORIDE

REACTIONS (3)
  - Narcolepsy [Not Recovered/Not Resolved]
  - Feeling abnormal [Not Recovered/Not Resolved]
  - Activities of daily living impaired [Unknown]
